FAERS Safety Report 8450826-2 (Version None)
Quarter: 2012Q2

REPORT INFORMATION
  Report Type: 
  Country: None (occurrence: None)
  Receive Date: 20120620
  Receipt Date: 20120612
  Transmission Date: 20120825
  Serious: Yes (Other)
  Sender: FDA-Public Use
  Company Number: US-UCBSA-059566

PATIENT
  Age: 47 Year
  Sex: Female
  Weight: 68.03 kg

DRUGS (4)
  1. ORAL CONTRACEPTIVES [Concomitant]
  2. PREDNISONE TAB [Concomitant]
  3. CIMZIA [Suspect]
     Indication: CROHN'S DISEASE
     Route: 058
     Dates: start: 20111201, end: 20120201
  4. PREDNISONE TAB [Concomitant]
     Dates: start: 20120101

REACTIONS (3)
  - LUPUS-LIKE SYNDROME [None]
  - ARTHRALGIA [None]
  - JOINT SWELLING [None]
